FAERS Safety Report 13959448 (Version 1)
Quarter: 2017Q3

REPORT INFORMATION
  Report Type: Spontaneous
  Country: DE (occurrence: DE)
  Receive Date: 20170912
  Receipt Date: 20170912
  Transmission Date: 20171128
  Serious: Yes (Other)
  Sender: FDA-Public Use
  Company Number: DE-TORRENT-00007047

PATIENT
  Sex: Female
  Weight: 76 kg

DRUGS (5)
  1. TAVOR 1,0 [Concomitant]
  2. ZOPICLONE [Concomitant]
     Active Substance: ZOPICLONE
  3. ESCITALOPRAM [Suspect]
     Active Substance: ESCITALOPRAM OXALATE
  4. FOLIO (NEM) [Concomitant]
  5. RISPERIDONE. [Suspect]
     Active Substance: RISPERIDONE

REACTIONS (2)
  - Exposure during pregnancy [Unknown]
  - Gestational diabetes [Recovered/Resolved]
